FAERS Safety Report 12425677 (Version 1)
Quarter: 2016Q2

REPORT INFORMATION
  Report Type: Spontaneous
  Country: DK (occurrence: NL)
  Receive Date: 20160601
  Receipt Date: 20160601
  Transmission Date: 20160815
  Serious: Yes (Disabling)
  Sender: FDA-Public Use
  Company Number: NL-FRI-1000085034

PATIENT
  Sex: Female
  Weight: 68 kg

DRUGS (4)
  1. CITALOPRAM [Suspect]
     Active Substance: CITALOPRAM HYDROBROMIDE
     Indication: BORDERLINE PERSONALITY DISORDER
     Dosage: 1 TIMES PER DAY 1 PIECE
     Route: 048
     Dates: start: 2002, end: 2009
  2. PARACETAMOL/ASCORBINEZUUR POEDER V DRANK 500/50MG [Concomitant]
     Indication: PRODUCT USED FOR UNKNOWN INDICATION
     Dosage: EXTRA INFO: NOW AND THEN FOR (HEAD)ACHE
     Route: 048
     Dates: start: 1998, end: 2016
  3. OMEPRAZOL RP CAPSULE MSR 10MG - NON-CURRENT DRUG [Concomitant]
     Indication: PROPHYLAXIS AGAINST GASTROINTESTINAL ULCER
     Dosage: EXTRA INFO: ONLY WHEN I AM TAKING FOR EXAMPLE ANTIBIOTICS
     Route: 048
     Dates: start: 2010
  4. ESCITALOPRAM [Suspect]
     Active Substance: ESCITALOPRAM OXALATE
     Indication: BORDERLINE PERSONALITY DISORDER
     Dosage: 10 MG
     Route: 048
     Dates: start: 2009

REACTIONS (4)
  - Tooth disorder [Not Recovered/Not Resolved]
  - Therapeutic response unexpected [Not Recovered/Not Resolved]
  - Product use issue [Recovered/Resolved]
  - Hypersensitivity [Not Recovered/Not Resolved]

NARRATIVE: CASE EVENT DATE: 2014
